FAERS Safety Report 8781323 (Version 1)
Quarter: 2012Q4

REPORT INFORMATION
  Report Type: 
  Country: US (occurrence: US)
  Receive Date: 20120913
  Receipt Date: 20120913
  Transmission Date: 20130627
  Serious: No
  Sender: FDA-Public Use
  Company Number: US-VERTEX PHARMACEUTICAL INC.-AE-2012-007402

PATIENT

DRUGS (8)
  1. INCIVEK [Suspect]
     Indication: HEPATITIS C
     Route: 048
     Dates: start: 20120508
  2. RIBAVIRIN [Concomitant]
     Indication: HEPATITIS C
     Dates: start: 20120508
  3. PEGASYS [Concomitant]
     Indication: HEPATITIS C
     Route: 058
     Dates: start: 20120508
  4. PREVACID [Concomitant]
  5. HCTZ [Concomitant]
  6. HYDROXYZINE HCL [Concomitant]
  7. PANTOPRAZOLE [Concomitant]
  8. DIAZIDE [Concomitant]

REACTIONS (4)
  - Skin disorder [Recovered/Resolved]
  - Skin hyperpigmentation [Recovered/Resolved]
  - Rash maculo-papular [Recovered/Resolved]
  - Pruritus [Not Recovered/Not Resolved]
